FAERS Safety Report 14302363 (Version 1)
Quarter: 2017Q4

REPORT INFORMATION
  Report Type: Spontaneous
  Country: US (occurrence: US)
  Receive Date: 20171219
  Receipt Date: 20171219
  Transmission Date: 20180321
  Serious: No
  Sender: FDA-Public Use
  Company Number: US-SUPERNUS PHARMACEUTICALS, INC.-2017SUP00069

PATIENT
  Age: 70 Year
  Sex: Female
  Weight: 79.37 kg

DRUGS (15)
  1. TROKENDI XR [Suspect]
     Active Substance: TOPIRAMATE
     Dosage: 50 MG, 1X/DAY
     Dates: start: 2017, end: 201702
  2. VITAMIN D [Concomitant]
     Active Substance: CHOLECALCIFEROL
     Dosage: 50000 U, 2X/MONTH
  3. UNSPECIFIED BLOOD PRESSURE MEDICATION [Concomitant]
     Active Substance: UNSPECIFIED INGREDIENT
  4. TROKENDI XR [Suspect]
     Active Substance: TOPIRAMATE
     Dosage: 50 MG, 1X/DAY IN THE MORNING
     Dates: start: 20170314
  5. ASPIRIN. [Concomitant]
     Active Substance: ASPIRIN
     Dosage: 81 UNK, UNK
  6. TROKENDI XR [Suspect]
     Active Substance: TOPIRAMATE
     Indication: PARTIAL SEIZURES
     Dosage: 100 MG, 1X/DAY
     Route: 048
     Dates: start: 201702, end: 20170313
  7. TROKENDI XR [Suspect]
     Active Substance: TOPIRAMATE
     Indication: PARTIAL SEIZURES
     Dosage: 25 MG, 1X/DAY
     Route: 048
     Dates: start: 20170106, end: 20170119
  8. TROKENDI XR [Suspect]
     Active Substance: TOPIRAMATE
     Dosage: 25 MG, 1X/DAY
     Dates: start: 20170314
  9. TROKENDI XR [Suspect]
     Active Substance: TOPIRAMATE
     Indication: PARTIAL SEIZURES
     Dosage: 50 MG, 1X/DAY
     Route: 048
     Dates: start: 20170120, end: 2017
  10. OMEGA 3 [Concomitant]
     Active Substance: OMEGA-3 FATTY ACIDS
  11. TROKENDI XR [Suspect]
     Active Substance: TOPIRAMATE
     Dosage: 25 MG, 1X/DAY
     Dates: start: 2017, end: 201702
  12. UNSPECIFIED THYROID MEDICATION [Concomitant]
     Active Substance: UNSPECIFIED INGREDIENT
  13. ATIVAN [Concomitant]
     Active Substance: LORAZEPAM
     Dosage: UNK, 3X/DAY
  14. HYDROCODONE [Concomitant]
     Active Substance: HYDROCODONE
  15. MAXZIDE [Concomitant]
     Active Substance: HYDROCHLOROTHIAZIDE\TRIAMTERENE

REACTIONS (19)
  - Dehydration [Unknown]
  - Dyspnoea [Not Recovered/Not Resolved]
  - Anxiety [Recovered/Resolved]
  - Fatigue [Not Recovered/Not Resolved]
  - Hypoaesthesia [Recovered/Resolved]
  - Personality change [Recovered/Resolved]
  - Loss of personal independence in daily activities [Recovered/Resolved]
  - Blood potassium decreased [Unknown]
  - Paranoia [Recovered/Resolved]
  - Paraesthesia [Recovered/Resolved]
  - Dyspepsia [Unknown]
  - Hiatus hernia [Unknown]
  - Feeling of despair [Recovered/Resolved]
  - Crying [Recovered/Resolved]
  - Emotional disorder [Recovered/Resolved]
  - Feeling abnormal [Recovered/Resolved]
  - Breast pain [Unknown]
  - Insomnia [Not Recovered/Not Resolved]
  - Chest pain [Unknown]

NARRATIVE: CASE EVENT DATE: 2017
